FAERS Safety Report 7995265-3 (Version None)
Quarter: 2011Q4

REPORT INFORMATION
  Report Type: 
  Country: None (occurrence: None)
  Receive Date: 20111220
  Receipt Date: 20111220
  Transmission Date: 20120403
  Serious: Yes (Life-Threatening)
  Sender: FDA-Public Use
  Company Number: None

PATIENT
  Age: 50 Year
  Sex: Female
  Weight: 53.523 kg

DRUGS (1)
  1. NAPROXEN SODIUM [Suspect]
     Dosage: UNKNOWN
     Route: 048

REACTIONS (2)
  - PRODUCT COMMINGLING [None]
  - PRODUCT QUALITY ISSUE [None]
